FAERS Safety Report 7717982-2 (Version None)
Quarter: 2011Q3

REPORT INFORMATION
  Report Type: 
  Country: None (occurrence: None)
  Receive Date: 20110830
  Receipt Date: 20110728
  Transmission Date: 20111222
  Serious: Yes (Other)
  Sender: FDA-Public Use
  Company Number: US-AMGEN-USASP2011033167

PATIENT
  Sex: Female
  Weight: 104.3 kg

DRUGS (7)
  1. LASIX [Concomitant]
  2. FLUCONAZOLE [Concomitant]
  3. LEVEMIR [Concomitant]
  4. PREVACID [Concomitant]
  5. PREDNISONE [Concomitant]
  6. NPLATE [Suspect]
     Indication: IDIOPATHIC THROMBOCYTOPENIC PURPURA
     Dosage: 5 A?G/KG, UNK
     Dates: start: 20110202, end: 20110302
  7. FOLIC ACID [Concomitant]

REACTIONS (1)
  - DRUG INEFFECTIVE [None]
